FAERS Safety Report 4500653-3 (Version None)
Quarter: 2004Q4

REPORT INFORMATION
  Report Type: 
  Country: None (occurrence: None)
  Receive Date: 20041109
  Receipt Date: 20041022
  Transmission Date: 20050328
  Serious: Yes (Death)
  Sender: FDA-Public Use
  Company Number: US_0410107234

PATIENT
  Sex: Male

DRUGS (3)
  1. ZYPREXA [Suspect]
     Indication: AFFECTIVE DISORDER
     Dates: start: 20020101, end: 20040319
  2. ZYPREXA [Suspect]
     Indication: ANXIETY
     Dates: start: 20020101, end: 20040319
  3. ZYPREXA [Suspect]
     Indication: MANIA
     Dates: start: 20020101, end: 20040319

REACTIONS (1)
  - PANCREATITIS ACUTE [None]
